FAERS Safety Report 19259115 (Version 3)
Quarter: 2021Q4

REPORT INFORMATION
  Report Type: Spontaneous
  Country: US (occurrence: US)
  Receive Date: 20210514
  Receipt Date: 20211104
  Transmission Date: 20220303
  Serious: Yes (Other)
  Sender: FDA-Public Use
  Company Number: US-PFIZER INC-2021499571

PATIENT
  Age: 82 Year
  Sex: Female

DRUGS (1)
  1. XELJANZ XR [Suspect]
     Active Substance: TOFACITINIB CITRATE
     Dosage: 11 MG

REACTIONS (7)
  - Haematological malignancy [Unknown]
  - Full blood count abnormal [Unknown]
  - Fibromyalgia [Unknown]
  - White blood cell count decreased [Unknown]
  - Pain [Unknown]
  - Hypoacusis [Unknown]
  - Sinusitis [Unknown]
